FAERS Safety Report 4560774-6 (Version None)
Quarter: 2005Q1

REPORT INFORMATION
  Report Type: 
  Country: None (occurrence: None)
  Receive Date: 20050126
  Receipt Date: 20041224
  Transmission Date: 20050727
  Serious: Yes (Hospitalization)
  Sender: FDA-Public Use
  Company Number: IT-BRISTOL-MYERS SQUIBB COMPANY-12806204

PATIENT
  Age: 43 Year
  Sex: Male

DRUGS (3)
  1. ATAZANAVIR [Suspect]
     Indication: HIV INFECTION
     Route: 048
     Dates: start: 20030821, end: 20041209
  2. DIDANOSINE [Concomitant]
     Dates: start: 19990101, end: 20041209
  3. STAVUDINE [Concomitant]
     Dates: start: 19990101, end: 20041209

REACTIONS (1)
  - HEPATIC FAILURE [None]
